FAERS Safety Report 7342926-5 (Version None)
Quarter: 2011Q1

REPORT INFORMATION
  Report Type: 
  Country: None (occurrence: None)
  Receive Date: 20110228
  Receipt Date: 20110222
  Transmission Date: 20110831
  Serious: Yes (Other)
  Sender: FDA-Public Use
  Company Number: 2010SP065673

PATIENT
  Sex: Female
  Weight: 67.9 kg

DRUGS (1)
  1. IMPLANON [Suspect]
     Indication: CONTRACEPTION
     Dosage: 68 MG;
     Dates: start: 20080606

REACTIONS (3)
  - OESTROGEN RECEPTOR ASSAY POSITIVE [None]
  - INFECTION [None]
  - BREAST CANCER FEMALE [None]
